FAERS Safety Report 7860380-1 (Version None)
Quarter: 2011Q4

REPORT INFORMATION
  Report Type: 
  Country: None (occurrence: None)
  Receive Date: 20111027
  Receipt Date: 20111018
  Transmission Date: 20120403
  Serious: Yes (Other)
  Sender: FDA-Public Use
  Company Number: PHEH2011US04207

PATIENT
  Sex: Female

DRUGS (9)
  1. HYDROCODONE BITARTRATE [Concomitant]
     Dosage: UNK UKN, UNK
  2. PAXIL [Concomitant]
     Indication: ANXIETY
     Dosage: 25 MG, UNK
     Route: 048
     Dates: start: 20100810
  3. PREMARIN [Concomitant]
     Dosage: UNK UKN, UNK
     Route: 048
  4. RESTORIL [Concomitant]
     Indication: INSOMNIA
     Dosage: 15 MG, UNK
     Route: 048
     Dates: start: 20100810
  5. NSAID'S [Concomitant]
     Dosage: UNK UKN, UNK
  6. GILENYA [Suspect]
     Indication: MULTIPLE SCLEROSIS
     Dosage: 0.5 MG, DAILY
     Route: 048
     Dates: start: 20110121, end: 20110901
  7. CLARITIN [Concomitant]
     Indication: HYPERSENSITIVITY
     Dosage: UNK UKN, UNK
     Route: 048
  8. AMLODIPINE [Concomitant]
     Dosage: UNK UKN, UNK
  9. APAP TAB [Concomitant]
     Dosage: UNK UKN, UNK

REACTIONS (4)
  - ABNORMAL SENSATION IN EYE [None]
  - CATARACT [None]
  - HEADACHE [None]
  - BLOOD PRESSURE INCREASED [None]
